FAERS Safety Report 23778730 (Version 1)
Quarter: 2024Q2

REPORT INFORMATION
  Report Type: Spontaneous
  Country: US (occurrence: US)
  Receive Date: 20240424
  Receipt Date: 20240424
  Transmission Date: 20240716
  Serious: No
  Sender: FDA-Public Use
  Company Number: US-Calliditas-2024CAL00603

PATIENT
  Age: 61 Year
  Sex: Female
  Weight: 113.4 kg

DRUGS (2)
  1. TARPEYO [Suspect]
     Active Substance: BUDESONIDE
     Indication: IgA nephropathy
     Dosage: 16MG (4MG CAPSULES) ONCE DAILY
     Route: 048
     Dates: start: 20240316
  2. LISINOPRIL [Concomitant]
     Active Substance: LISINOPRIL

REACTIONS (1)
  - Peripheral swelling [Unknown]
